FAERS Safety Report 16904701 (Version 3)
Quarter: 2020Q1

REPORT INFORMATION
  Report Type: Spontaneous
  Country: US (occurrence: US)
  Receive Date: 20191010
  Receipt Date: 20200108
  Transmission Date: 20200409
  Serious: No
  Sender: FDA-Public Use
  Company Number: US-AMERICAN REGENT INC-2019001882

PATIENT
  Age: 36 Year
  Sex: Female
  Weight: 86.17 kg

DRUGS (2)
  1. HYDROXYPROGESTERONE CAPROATE INJECTION, USP (0517-1767-01) [Suspect]
     Active Substance: HYDROXYPROGESTERONE CAPROATE
     Indication: PREMATURE LABOUR
  2. HYDROXYPROGESTERONE CAPROATE INJECTION, USP (0517-1767-01) [Suspect]
     Active Substance: HYDROXYPROGESTERONE CAPROATE
     Indication: TOCOLYSIS
     Dosage: 250 MILLIGRAM, ONCE WEEKLY
     Route: 030
     Dates: start: 20190802

REACTIONS (6)
  - Product quality issue [Unknown]
  - Exposure during pregnancy [Unknown]
  - Injection site pruritus [Unknown]
  - Injection site erythema [Unknown]
  - Injection site irritation [Unknown]
  - Injection site mass [Unknown]

NARRATIVE: CASE EVENT DATE: 20190802
